FAERS Safety Report 10569776 (Version 1)
Quarter: 2014Q4

REPORT INFORMATION
  Report Type: Spontaneous
  Country: DE (occurrence: DE)
  Receive Date: 20141107
  Receipt Date: 20141107
  Transmission Date: 20150529
  Serious: Yes (Congenital Anomaly, Other)
  Sender: FDA-Public Use
  Company Number: DE-DRREDDYS-GER/GER/14/0044116

PATIENT
  Age: 1 Day
  Sex: Female
  Weight: 2.33 kg

DRUGS (5)
  1. LAMOTRIGINE. [Suspect]
     Active Substance: LAMOTRIGINE
     Indication: PRODUCT USED FOR UNKNOWN INDICATION
     Dosage: 100 MG/D  GW 0-12, 150MG/D GW 12-DELIVERY
     Route: 064
     Dates: start: 20130210, end: 20131008
  2. THYRONAJOD [Concomitant]
     Active Substance: LEVOTHYROXINE SODIUM\POTASSIUM IODIDE
     Indication: PRODUCT USED FOR UNKNOWN INDICATION
     Route: 064
     Dates: start: 20130210, end: 20131008
  3. HAEMATE [Concomitant]
     Active Substance: ANTIHEMOPHILIC FACTOR HUMAN
     Indication: PRODUCT USED FOR UNKNOWN INDICATION
     Route: 064
     Dates: start: 20130325, end: 20130403
  4. FOLSAN 5 MG VON ABBOTT [Concomitant]
     Indication: PRODUCT USED FOR UNKNOWN INDICATION
     Route: 064
     Dates: start: 20130210, end: 20131008
  5. NAUSEMA [Concomitant]
     Indication: PRODUCT USED FOR UNKNOWN INDICATION
     Route: 064

REACTIONS (6)
  - Cerebral haemorrhage neonatal [Unknown]
  - Foetal exposure during pregnancy [Unknown]
  - Thrombocytopenia neonatal [Recovered/Resolved]
  - Coagulation disorder neonatal [Recovered/Resolved]
  - Haemangioma congenital [Unknown]
  - Atrial septal defect [Unknown]

NARRATIVE: CASE EVENT DATE: 20131008
